FAERS Safety Report 4706300-X (Version None)
Quarter: 2005Q2

REPORT INFORMATION
  Report Type: 
  Country: None (occurrence: None)
  Receive Date: 20050629
  Receipt Date: 20050504
  Transmission Date: 20051028
  Serious: Yes (Hospitalization)
  Sender: FDA-Public Use
  Company Number: 05P-163-0295387-00

PATIENT
  Age: 52 Year
  Sex: Male
  Weight: 124 kg

DRUGS (12)
  1. HUMIRA [Suspect]
     Indication: RHEUMATOID ARTHRITIS
     Dosage: 40 MG, 1 IN 2 WK, SUBCUTANEOUS
     Route: 058
     Dates: start: 20040801, end: 20050101
  2. WARFARIN SODIUM [Concomitant]
  3. RANITIDINE HYDROCHLORIDE [Concomitant]
  4. SULFASALAZINE [Concomitant]
  5. OXYCODONE HCL [Concomitant]
  6. METOPROLOL TARTRATE [Concomitant]
  7. SERTRALINE HYDROCHLORIDE [Concomitant]
  8. IRON [Concomitant]
  9. LANSOPRAZOLE [Concomitant]
  10. FERROUS SULFATE [Concomitant]
  11. METHADONE [Concomitant]
  12. FAMOTIDINE [Concomitant]

REACTIONS (2)
  - ALPHA HAEMOLYTIC STREPTOCOCCAL INFECTION [None]
  - PANCYTOPENIA [None]
